FAERS Safety Report 25860176 (Version 1)
Quarter: 2025Q3

REPORT INFORMATION
  Report Type: Spontaneous
  Country: US (occurrence: US)
  Receive Date: 20250929
  Receipt Date: 20250929
  Transmission Date: 20251021
  Serious: Yes (Hospitalization)
  Sender: BRAINTREE
  Company Number: US-BRAINTREE LABORATORIES, INC.-2025BTE00590

PATIENT
  Age: 71 Year
  Sex: Female
  Weight: 45.351 kg

DRUGS (1)
  1. SUTAB [Suspect]
     Active Substance: MAGNESIUM SULFATE\POTASSIUM CHLORIDE\SODIUM SULFATE
     Indication: Colonoscopy
     Route: 048
     Dates: start: 20250911, end: 20250912

REACTIONS (8)
  - Dehydration [Recovering/Resolving]
  - Drug ineffective [Recovered/Resolved]
  - Malaise [Unknown]
  - Fear [Unknown]
  - Diarrhoea [Unknown]
  - Asthenia [Unknown]
  - Blood glucose decreased [Unknown]
  - Abdominal distension [Unknown]

NARRATIVE: CASE EVENT DATE: 20250911
